FAERS Safety Report 8491536-5 (Version None)
Quarter: 2012Q3

REPORT INFORMATION
  Report Type: 
  Country: None (occurrence: None)
  Receive Date: 20120706
  Receipt Date: 20120627
  Transmission Date: 20120928
  Serious: Yes (Hospitalization)
  Sender: FDA-Public Use
  Company Number: FR-ASTRAZENECA-2012SE44117

PATIENT
  Sex: Male

DRUGS (8)
  1. CLARITHROMYCIN [Suspect]
     Route: 048
     Dates: start: 20120131, end: 20120207
  2. LORATADINE [Suspect]
     Indication: BRONCHITIS
     Route: 048
     Dates: start: 20120415, end: 20120427
  3. PULMICORT [Concomitant]
     Indication: ASTHMA
  4. CLARITHROMYCIN [Suspect]
     Indication: BRONCHITIS
     Route: 048
     Dates: start: 20120420, end: 20120425
  5. ROVAMYCINE [Suspect]
     Indication: BRONCHITIS
     Dosage: 3 MIU BID
     Route: 048
     Dates: start: 20120228, end: 20120306
  6. PREDNISONE TAB [Concomitant]
     Dates: start: 20120420, end: 20120425
  7. NEXIUM [Suspect]
     Route: 048
  8. VENTOLIN [Concomitant]
     Indication: ASTHMA

REACTIONS (1)
  - MIXED LIVER INJURY [None]
